FAERS Safety Report 5411006-8 (Version None)
Quarter: 2007Q3

REPORT INFORMATION
  Report Type: 
  Country: None (occurrence: None)
  Receive Date: 20070713
  Receipt Date: 20070614
  Transmission Date: 20080115
  Serious: No
  Sender: FDA-Public Use
  Company Number: 2007SP002255

PATIENT
  Age: 76 Year
  Sex: Male
  Weight: 147.419 kg

DRUGS (12)
  1. LUNESTA [Suspect]
     Indication: INSOMNIA
     Dosage: 2 MG;1X;ORAL
     Route: 048
     Dates: start: 20070613, end: 20070613
  2. PRIMIDONE [Concomitant]
  3. PHENYTOIN [Concomitant]
  4. PAROXETINE [Concomitant]
  5. PREVACID [Concomitant]
  6. VALSARTAN [Concomitant]
  7. ISORBID [Concomitant]
  8. BUMETANIDE [Concomitant]
  9. SPIRONOLACTONE [Concomitant]
  10. TIOTROPIUM BROMIDE [Concomitant]
  11. ALBUTEROL [Concomitant]
  12. ADVAIR DISKUS 100/50 [Concomitant]

REACTIONS (1)
  - INSOMNIA [None]
